FAERS Safety Report 5593655-X (Version None)
Quarter: 2008Q1

REPORT INFORMATION
  Report Type: 
  Country: None (occurrence: None)
  Receive Date: 20080116
  Receipt Date: 20070709
  Transmission Date: 20080703
  Serious: No
  Sender: FDA-Public Use
  Company Number: US-ABBOTT-07P-163-0374190-00

PATIENT
  Sex: Male
  Weight: 19.522 kg

DRUGS (15)
  1. BIAXIN GRANULES 250MG/5ML [Suspect]
     Indication: HELICOBACTER INFECTION
     Route: 048
     Dates: start: 20070703
  2. BIAXIN GRANULES 250MG/5ML [Suspect]
     Dosage: 250MG/ 5ML
     Route: 048
     Dates: start: 20070703
  3. METRONIDAZOLE [Suspect]
     Indication: HELICOBACTER INFECTION
     Route: 048
     Dates: start: 20070703
  4. OMEPRAZOLE [Suspect]
     Indication: GASTROINTESTINAL DISORDER
     Route: 048
     Dates: start: 20030101
  5. LEVOTHYROXINE SODIUM [Concomitant]
     Indication: HYPOTHYROIDISM
     Route: 048
     Dates: start: 20030101
  6. CLONAZEPAM [Concomitant]
     Indication: CONVULSION
     Route: 048
     Dates: start: 20030101
  7. TOPIRAMATE [Concomitant]
     Indication: PROPHYLAXIS
     Route: 048
     Dates: start: 20030101
  8. TOPIRAMATE [Concomitant]
     Indication: CARDIAC DISORDER
  9. PHENOBARBITAL TAB [Concomitant]
     Indication: CONVULSION
     Route: 048
     Dates: start: 20030101
  10. PREGABALIN [Concomitant]
     Indication: CONVULSION
     Route: 048
     Dates: start: 20060101
  11. GLYCOPYRRONIUM BROMIDE [Concomitant]
     Indication: DRUG USE FOR UNKNOWN INDICATION
     Route: 048
     Dates: start: 20030101
  12. DESMOPRESSIN [Concomitant]
     Indication: URINARY TRACT DISORDER
     Route: 048
     Dates: start: 20030101
  13. URSODIOL [Concomitant]
     Indication: PROPHYLAXIS
     Route: 048
     Dates: start: 20050101
  14. URSODIOL [Concomitant]
     Indication: CHOLELITHIASIS
  15. PREDNISOLONE [Concomitant]
     Indication: ADRENAL DISORDER
     Route: 048
     Dates: start: 20030101

REACTIONS (2)
  - DEPRESSED LEVEL OF CONSCIOUSNESS [None]
  - LETHARGY [None]
